FAERS Safety Report 9703747 (Version 1)
Quarter: 2013Q4

REPORT INFORMATION
  Report Type: Report from Study
  Country: US (occurrence: US)
  Receive Date: 20131122
  Receipt Date: 20131122
  Transmission Date: 20140711
  Serious: Yes (Hospitalization, Other)
  Sender: FDA-Public Use
  Company Number: PHEH2013US024187

PATIENT
  Age: 71 Year
  Sex: Male

DRUGS (1)
  1. TOBI PODHALER [Suspect]
     Indication: PSEUDOMONAS INFECTION
     Dosage: 4 CAPSULES, BID
     Route: 048

REACTIONS (3)
  - Solar lentigo [Unknown]
  - Renal failure [Unknown]
  - Deafness unilateral [Unknown]
